FAERS Safety Report 5045685-4 (Version None)
Quarter: 2006Q3

REPORT INFORMATION
  Report Type: 
  Country: None (occurrence: None)
  Receive Date: 20060707
  Receipt Date: 20060629
  Transmission Date: 20061208
  Serious: Yes (Death, Other)
  Sender: FDA-Public Use
  Company Number: JP-MERCK-0607USA00413

PATIENT
  Age: 70 Year
  Sex: Female

DRUGS (3)
  1. PRIMAXIN [Suspect]
     Indication: SEPSIS
     Route: 042
     Dates: start: 20060615, end: 20060615
  2. DYPHYLLINE [Suspect]
     Indication: RESPIRATORY FAILURE
     Route: 051
     Dates: start: 20060613, end: 20060614
  3. FIRSTCIN [Concomitant]
     Indication: SEPSIS
     Route: 042
     Dates: start: 20060613, end: 20060614

REACTIONS (2)
  - CONVULSION [None]
  - GASTRIC CANCER [None]
